FAERS Safety Report 8217641-6 (Version None)
Quarter: 2012Q1

REPORT INFORMATION
  Report Type: 
  Country: None (occurrence: None)
  Receive Date: 20120305
  Receipt Date: 20111205
  Transmission Date: 20120608
  Serious: No
  Sender: FDA-Public Use
  Company Number: 1000022147

PATIENT
  Age: 83 Year
  Sex: Female

DRUGS (10)
  1. ASMANEX (MOMETASONE FURATE) (MOMETASONE FURATE) [Concomitant]
  2. LISINOPRIL [Concomitant]
  3. DALIRESP [Suspect]
     Indication: CHRONIC OBSTRUCTIVE PULMONARY DISEASE
     Dosage: 500 MCG (500 MCG,1 IN 1 D), ORAL
     Route: 048
     Dates: start: 20110710, end: 20110701
  4. AZITHROMYCIN [Suspect]
     Indication: SINUSITIS
     Dosage: 150 MG (150MG, 1 IN 1 D), ORAL
     Route: 048
     Dates: start: 20111205
  5. ALBUTEROL (ALBUTEROL) (ALBUTEROL) [Concomitant]
  6. DALIRESP [Suspect]
     Indication: CHRONIC OBSTRUCTIVE PULMONARY DISEASE
     Dosage: 500 MCG,1 IN 1 D),ORAL
     Route: 048
     Dates: start: 20111110
  7. FORADIL (FORMOTEROL) (FORMOTEROL) [Concomitant]
  8. VALIUM [Concomitant]
  9. AZITHROMYCIN [Suspect]
     Indication: SINUSITIS
     Dosage: 150 MG (150 MG, 1 IN 1 D), ORAL
     Route: 048
     Dates: start: 20111110, end: 20111119
  10. COPD MEDICATIONS NOS (COPD MEDICATIONS NOS) (COPD MEDICATIONS NOS) [Concomitant]

REACTIONS (8)
  - TREMOR [None]
  - INSOMNIA [None]
  - HEADACHE [None]
  - BLOOD PRESSURE INCREASED [None]
  - INFLUENZA LIKE ILLNESS [None]
  - ABDOMINAL PAIN UPPER [None]
  - BACK PAIN [None]
  - DIARRHOEA [None]
